FAERS Safety Report 6377475-4 (Version None)
Quarter: 2009Q3

REPORT INFORMATION
  Report Type: 
  Country: None (occurrence: None)
  Receive Date: 20090925
  Receipt Date: 20090917
  Transmission Date: 20100115
  Serious: Yes (Other)
  Sender: FDA-Public Use
  Company Number: SE-BAYER-200933068GPV

PATIENT
  Age: 46 Year
  Sex: Male

DRUGS (3)
  1. NIMOTOP [Suspect]
     Indication: SUBARACHNOID HAEMORRHAGE
     Dosage: 10 ML/H
     Route: 042
     Dates: start: 20090915, end: 20090918
  2. NIMOTOP [Suspect]
     Dosage: 10 ML/H
     Route: 042
     Dates: start: 20090921
  3. ANTABUSE [Concomitant]
     Indication: ALCOHOL ABUSE
     Dates: end: 20090907

REACTIONS (3)
  - ANXIETY [None]
  - PYREXIA [None]
  - TRACHEOSTOMY [None]
